FAERS Safety Report 9243055 (Version 4)
Quarter: 2017Q3

REPORT INFORMATION
  Report Type: Spontaneous
  Country: US (occurrence: US)
  Receive Date: 20130419
  Receipt Date: 20170918
  Transmission Date: 20171128
  Serious: Yes (Hospitalization, Other)
  Sender: FDA-Public Use
  Company Number: US-009507513-1304USA008958

PATIENT
  Sex: Female

DRUGS (3)
  1. RECLAST [Suspect]
     Active Substance: ZOLEDRONIC ACID
     Indication: OSTEOPOROSIS
     Dosage: UNK, ONCE A YEAR
     Route: 042
     Dates: start: 20101213
  2. FOSAMAX [Suspect]
     Active Substance: ALENDRONATE SODIUM
     Indication: OSTEOPOROSIS
     Dosage: 70 MG, QW
     Route: 048
     Dates: start: 200107, end: 2008
  3. ALENDRONATE SODIUM. [Suspect]
     Active Substance: ALENDRONATE SODIUM
     Indication: OSTEOPOROSIS
     Dosage: 70 MG, QW
     Route: 048
     Dates: start: 2008, end: 201008

REACTIONS (15)
  - Fall [Unknown]
  - Dyspnoea [Unknown]
  - Hypertension [Unknown]
  - Blood cholesterol increased [Unknown]
  - Fall [Unknown]
  - Fall [Unknown]
  - Joint dislocation [Unknown]
  - Injury [Unknown]
  - Femur fracture [Unknown]
  - Thrombosis [Unknown]
  - Spinal compression fracture [Recovered/Resolved with Sequelae]
  - Femur fracture [Unknown]
  - Peripheral swelling [Unknown]
  - Osteoarthritis [Unknown]
  - Spinal osteoarthritis [Unknown]

NARRATIVE: CASE EVENT DATE: 2001
